FAERS Safety Report 5333203-2 (Version None)
Quarter: 2007Q2

REPORT INFORMATION
  Report Type: 
  Country: None (occurrence: None)
  Receive Date: 20070524
  Receipt Date: 20070515
  Transmission Date: 20071010
  Serious: Yes (Other)
  Sender: FDA-Public Use
  Company Number: PHBS2007BR08182

PATIENT
  Sex: Female

DRUGS (4)
  1. ESTRADOT [Suspect]
     Indication: HORMONE REPLACEMENT THERAPY
     Dosage: 50 UG, BIW
     Route: 062
  2. PROPRANOLOL [Concomitant]
     Indication: HYPERTENSION
     Route: 048
  3. CALCIUM CARBONATE [Concomitant]
     Dosage: 1 TAB/DAY
  4. ESTRADERM [Suspect]
     Indication: HORMONE REPLACEMENT THERAPY
     Route: 062

REACTIONS (6)
  - BACK PAIN [None]
  - BENIGN NEOPLASM OF THYROID GLAND [None]
  - DRUG INEFFECTIVE [None]
  - INTERVERTEBRAL DISC PROTRUSION [None]
  - THYROID NODULE REMOVAL [None]
  - THYROIDECTOMY [None]
